FAERS Safety Report 9124935 (Version 3)
Quarter: 2013Q4

REPORT INFORMATION
  Report Type: Report from Study
  Country: BR (occurrence: BR)
  Receive Date: 20130227
  Receipt Date: 20131109
  Transmission Date: 20140711
  Serious: Yes (Hospitalization)
  Sender: FDA-Public Use
  Company Number: BR-ROCHE-1151372

PATIENT
  Sex: Female
  Weight: 70 kg

DRUGS (5)
  1. MABTHERA [Suspect]
     Indication: RHEUMATOID ARTHRITIS
     Dosage: RECEIVED HER LATEST INFUSION ON 23/MAY/2012
     Route: 042
     Dates: start: 20100101
  2. PREDNISONE [Concomitant]
  3. MOTILIUM (BRAZIL) [Concomitant]
  4. PANTOPRAZOLE [Concomitant]
  5. ADALAT OROS [Concomitant]
     Indication: HYPERTENSION
     Route: 065

REACTIONS (4)
  - Nodule [Unknown]
  - Immunodeficiency [Not Recovered/Not Resolved]
  - Influenza [Not Recovered/Not Resolved]
  - Hypothyroidism [Not Recovered/Not Resolved]
